FAERS Safety Report 21731244 (Version 1)
Quarter: 2022Q4

REPORT INFORMATION
  Report Type: Spontaneous
  Country: IT (occurrence: IT)
  Receive Date: 20221215
  Receipt Date: 20221215
  Transmission Date: 20230112
  Serious: Yes (Other)
  Sender: FDA-Public Use
  Company Number: IT-AMGEN-ITASP2022213028

PATIENT
  Age: 3 Year

DRUGS (1)
  1. BLINCYTO [Suspect]
     Active Substance: BLINATUMOMAB
     Indication: B precursor type acute leukaemia
     Dosage: 15 MICROGRAM/M2/QD FOR 28 DAYS
     Route: 065

REACTIONS (2)
  - Central nervous system leukaemia [Unknown]
  - Minimal residual disease [Not Recovered/Not Resolved]
